FAERS Safety Report 7141821-4 (Version None)
Quarter: 2010Q4

REPORT INFORMATION
  Report Type: 
  Country: None (occurrence: None)
  Receive Date: 20101207
  Receipt Date: 20101119
  Transmission Date: 20110411
  Serious: No
  Sender: FDA-Public Use
  Company Number: US-PFIZER INC-2010156113

PATIENT
  Age: 42 Year
  Sex: Male
  Weight: 90.71 kg

DRUGS (5)
  1. ADVIL [Suspect]
     Indication: EAR PAIN
     Dosage: UNK
     Route: 048
     Dates: start: 20101108, end: 20101108
  2. EFFEXOR XR [Concomitant]
     Dosage: UNK
  3. TRAZODONE [Concomitant]
     Dosage: UNK
  4. CLARITIN-D [Concomitant]
     Indication: HYPERSENSITIVITY
     Dosage: UNK
  5. AVELOX [Concomitant]
     Indication: EAR INFECTION
     Dosage: 400 MG, UNK

REACTIONS (1)
  - PALPITATIONS [None]
